FAERS Safety Report 12236545 (Version 2)
Quarter: 2016Q2

REPORT INFORMATION
  Report Type: Spontaneous
  Country: FR (occurrence: FR)
  Receive Date: 20160405
  Receipt Date: 20160505
  Transmission Date: 20160815
  Serious: Yes (Hospitalization)
  Sender: FDA-Public Use
  Company Number: FR-UCBSA-2016011687

PATIENT
  Age: 65 Year
  Sex: Male

DRUGS (2)
  1. KEPPRA [Suspect]
     Active Substance: LEVETIRACETAM
     Indication: EPILEPSY
     Dosage: 1500 MG, 2X/DAY (BID)
     Route: 048
     Dates: start: 2014, end: 201603
  2. KEPPRA [Suspect]
     Active Substance: LEVETIRACETAM
     Dosage: 2 G, 2X/DAY (BID)
     Route: 048
     Dates: start: 201603, end: 201604

REACTIONS (5)
  - Overdose [Unknown]
  - Urinary tract infection [Recovered/Resolved]
  - Hydrocephalus [Recovering/Resolving]
  - Off label use [Unknown]
  - Drug ineffective [Unknown]

NARRATIVE: CASE EVENT DATE: 201603
